FAERS Safety Report 19680232 (Version 1)
Quarter: 2021Q3

REPORT INFORMATION
  Report Type: Spontaneous
  Country: CN (occurrence: CN)
  Receive Date: 20210810
  Receipt Date: 20210810
  Transmission Date: 20211014
  Serious: Yes (Hospitalization)
  Sender: FDA-Public Use
  Company Number: CN-PFIZER INC-202101008455

PATIENT
  Age: 96 Year
  Sex: Female

DRUGS (13)
  1. RECOMBINANT HUMAN ERYTHROPOIETIN INJECTION (CHO CELL) [Concomitant]
     Indication: NEPHROGENIC ANAEMIA
     Dosage: 2000 IU
     Route: 058
     Dates: start: 20210608, end: 20210721
  2. ESOMEPRAZOLE MAGNESIUM. [Concomitant]
     Active Substance: ESOMEPRAZOLE MAGNESIUM
     Indication: DYSPEPSIA
  3. HYDROCHLOROTHIAZIDE. [Concomitant]
     Active Substance: HYDROCHLOROTHIAZIDE
     Indication: DIURETIC THERAPY
     Dosage: [BID]; 25ML TWICE DAILY
     Route: 048
     Dates: start: 20210702, end: 20210712
  4. COMPOUND ALPHA?KETOACID [Concomitant]
     Active Substance: AMINO ACIDS
     Indication: NUTRITIONAL SUPPLEMENTATION
     Dosage: [TID]; 2.25G THREE TIMES DAILY
     Route: 048
     Dates: start: 20210608, end: 20210714
  5. MEPEM [Suspect]
     Active Substance: MEROPENEM
     Indication: PNEUMONIA
     Dosage: 1G [QD]
     Route: 041
     Dates: start: 20210702
  6. CLOSTRIDIUM BUTYRICUM [Concomitant]
     Active Substance: CLOSTRIDIUM BUTYRICUM SPORES STRAIN M-55
     Indication: DYSBIOSIS
     Dosage: 400 MG, 3X/DAY
     Route: 048
     Dates: start: 20210608, end: 20210721
  7. ISEPAMICIN SULFATE. [Suspect]
     Active Substance: ISEPAMICIN SULFATE
     Indication: PNEUMONIA
     Dosage: 400MG [QD]
     Route: 041
     Dates: start: 20210702
  8. SPIRONOLACTONE. [Concomitant]
     Active Substance: SPIRONOLACTONE
     Indication: DIURETIC THERAPY
     Dosage: [BID]; 20MG TWICE DAILY
     Route: 048
     Dates: start: 20210608, end: 20210712
  9. FUDOSTEINE [Concomitant]
     Active Substance: FUDOSTEINE
     Indication: PRODUCTIVE COUGH
     Dosage: [TID]; 0.4G THREE TIMES DAILY
     Route: 048
     Dates: start: 20210608, end: 20210721
  10. TIGECYCLINE. [Suspect]
     Active Substance: TIGECYCLINE
     Indication: PNEUMONIA
     Dosage: 100 MG; EVERY 12 HOURS
     Route: 041
     Dates: start: 20210708, end: 20210715
  11. LACTULOSE. [Concomitant]
     Active Substance: LACTULOSE
     Indication: CONSTIPATION
     Dosage: TID]; 5G THREE TIMES DAILY
     Route: 048
     Dates: start: 20210608, end: 20210713
  12. ITOPRIDE HYDROCHLORIDE [Concomitant]
     Active Substance: ITOPRIDE HYDROCHLORIDE
     Indication: GASTROINTESTINAL HYPOMOTILITY
     Dosage: [TID]; 50MG THREE TIMES DAILY
     Route: 048
     Dates: start: 20210608, end: 20210721
  13. COMPOUND GLYCYRRHIZIN INJECTION [Concomitant]
     Active Substance: CYSTEINE\GLYCINE\GLYCYRRHIZIN
     Indication: LIVER DISORDER
     Dosage: [QD]; 40ML, ONCE DAILY
     Route: 042
     Dates: start: 20210702, end: 20210721

REACTIONS (2)
  - Diarrhoea [Recovered/Resolved]
  - Dysbiosis [Recovered/Resolved]

NARRATIVE: CASE EVENT DATE: 20210710
